FAERS Safety Report 15851963 (Version 2)
Quarter: 2019Q1

REPORT INFORMATION
  Report Type: Report from Study
  Country: None (occurrence: US)
  Receive Date: 20190122
  Receipt Date: 20190204
  Transmission Date: 20190417
  Serious: Yes (Hospitalization, Other)
  Sender: FDA-Public Use
  Company Number: US-ABBVIE-18K-163-2587696-00

PATIENT
  Age: 65 Year
  Sex: Female
  Weight: 111.23 kg

DRUGS (3)
  1. HUMIRA [Suspect]
     Active Substance: ADALIMUMAB
     Indication: CROHN^S DISEASE
     Route: 058
     Dates: start: 201711
  2. BENTYL [Concomitant]
     Active Substance: DICYCLOMINE HYDROCHLORIDE
     Indication: PRODUCT USED FOR UNKNOWN INDICATION
     Dosage: PRODUCT STARTED IN-SUMMER 2017, 1 TO 2 TABLETS UP TO THREE TIMES PER DAY AS NEEDED
     Dates: start: 2017
  3. MIRALAX [Concomitant]
     Active Substance: POLYETHYLENE GLYCOL 3350
     Indication: PRODUCT USED FOR UNKNOWN INDICATION
     Dosage: PRODUCT STARTED IN-AUTUMN 2018, 1 SCOOP DAILY
     Dates: start: 2018

REACTIONS (2)
  - Liver function test abnormal [Unknown]
  - Obstructive pancreatitis [Unknown]
